FAERS Safety Report 22038455 (Version 3)
Quarter: 2023Q2

REPORT INFORMATION
  Report Type: Spontaneous
  Country: US (occurrence: US)
  Receive Date: 20230227
  Receipt Date: 20230601
  Transmission Date: 20230721
  Serious: No
  Sender: FDA-Public Use
  Company Number: US-EXELIXIS-CABO-23061062

PATIENT
  Age: 50 Year
  Sex: Male

DRUGS (4)
  1. OPDIVO [Suspect]
     Active Substance: NIVOLUMAB
     Indication: Sarcoma
  2. OPDIVO [Suspect]
     Active Substance: NIVOLUMAB
     Indication: Malignant connective tissue neoplasm
  3. CABOMETYX [Suspect]
     Active Substance: CABOZANTINIB S-MALATE
     Indication: Sarcoma
  4. CABOMETYX [Suspect]
     Active Substance: CABOZANTINIB S-MALATE
     Indication: Malignant connective tissue neoplasm

REACTIONS (3)
  - Flatulence [Unknown]
  - Abdominal distension [Unknown]
  - Off label use [Unknown]
